FAERS Safety Report 15300531 (Version 1)
Quarter: 2018Q3

REPORT INFORMATION
  Report Type: Spontaneous
  Country: US (occurrence: US)
  Receive Date: 20180821
  Receipt Date: 20180821
  Transmission Date: 20181010
  Serious: Yes (Other)
  Sender: FDA-Public Use
  Company Number: PHHY2018US072388

PATIENT
  Age: 65 Year
  Sex: Female

DRUGS (1)
  1. METHOTREXATE. [Suspect]
     Active Substance: METHOTREXATE
     Indication: RHEUMATOID ARTHRITIS
     Dosage: UNK UNK, QD
     Route: 065

REACTIONS (7)
  - Febrile neutropenia [Unknown]
  - Toxic epidermal necrolysis [Unknown]
  - Rash [Unknown]
  - Inappropriate schedule of drug administration [Unknown]
  - Rash pruritic [Unknown]
  - Mucosal inflammation [Unknown]
  - Pancytopenia [Recovered/Resolved]
